FAERS Safety Report 14696174 (Version 1)
Quarter: 2018Q1

REPORT INFORMATION
  Report Type: Spontaneous
  Country: US (occurrence: US)
  Receive Date: 20180329
  Receipt Date: 20180329
  Transmission Date: 20180509
  Serious: No
  Sender: FDA-Public Use
  Company Number: US-SA-2017SA198113

PATIENT
  Age: 80 Year
  Sex: Female

DRUGS (1)
  1. ALLEGRA D-12 HOUR [Suspect]
     Active Substance: FEXOFENADINE HYDROCHLORIDE\PSEUDOEPHEDRINE HYDROCHLORIDE
     Indication: TINNITUS
     Dosage: 60 MG. / 120?MG.
     Route: 048

REACTIONS (2)
  - Feeding disorder [Unknown]
  - Dry mouth [Unknown]
